FAERS Safety Report 25330709 (Version 3)
Quarter: 2025Q3

REPORT INFORMATION
  Report Type: Spontaneous
  Country: KR (occurrence: KR)
  Receive Date: 20250519
  Receipt Date: 20250704
  Transmission Date: 20251021
  Serious: Yes (Other)
  Sender: SANOFI AVENTIS
  Company Number: KR-SA-2025SA139847

PATIENT
  Age: 53 Year
  Sex: Female

DRUGS (2)
  1. OXALIPLATIN [Suspect]
     Active Substance: OXALIPLATIN
     Indication: Adenocarcinoma of colon
     Dosage: 100 MG, QH, 200 MG (OVER 2 HOURS), INFUSION
     Route: 041
  2. OXALIPLATIN [Suspect]
     Active Substance: OXALIPLATIN
     Indication: Clear cell renal cell carcinoma
     Dosage: 50 MG, QH (SLOWER INFUSION RATE)
     Route: 041

REACTIONS (9)
  - Peripheral nerve hyperexcitability [Recovered/Resolved]
  - Dysarthria [Recovered/Resolved]
  - Muscular weakness [Recovered/Resolved]
  - Paraesthesia [Recovered/Resolved]
  - Muscle twitching [Recovered/Resolved]
  - Paraplegia [Recovered/Resolved]
  - Muscle contractions involuntary [Recovered/Resolved]
  - Sensory disturbance [Recovered/Resolved]
  - Off label use [Recovered/Resolved]
